FAERS Safety Report 14667826 (Version 3)
Quarter: 2018Q2

REPORT INFORMATION
  Report Type: Report from Study
  Country: US (occurrence: US)
  Receive Date: 20180322
  Receipt Date: 20180608
  Transmission Date: 20180711
  Serious: Yes (Hospitalization, Other)
  Sender: FDA-Public Use
  Company Number: PHHY2018US047923

PATIENT
  Age: 61 Year
  Sex: Male
  Weight: 77.11 kg

DRUGS (3)
  1. LAMPRENE [Suspect]
     Active Substance: CLOFAZIMINE
     Indication: MYCOBACTERIUM CHELONAE INFECTION
     Dosage: 100 UG, QD
     Route: 048
     Dates: start: 20171205
  2. TIGECYCLINE. [Suspect]
     Active Substance: TIGECYCLINE
     Indication: PRODUCT USED FOR UNKNOWN INDICATION
     Route: 042
  3. CLARITHROMYCIN. [Suspect]
     Active Substance: CLARITHROMYCIN
     Indication: INFECTION
     Dosage: 500 MG, UNK
     Route: 065
     Dates: start: 20180430

REACTIONS (12)
  - Pain in extremity [Recovered/Resolved]
  - Animal scratch [Unknown]
  - Dehydration [Not Recovered/Not Resolved]
  - Mycobacterium chelonae infection [Recovered/Resolved]
  - Blood glucose increased [Not Recovered/Not Resolved]
  - Pancreatitis acute [Unknown]
  - Sepsis [Unknown]
  - Fatigue [Unknown]
  - Cellulitis [Recovered/Resolved]
  - Leukocytosis [Unknown]
  - Malaise [Unknown]
  - Chronic kidney disease [Not Recovered/Not Resolved]

NARRATIVE: CASE EVENT DATE: 20180419
